FAERS Safety Report 13998576 (Version 1)
Quarter: 2017Q3

REPORT INFORMATION
  Report Type: Spontaneous
  Country: US (occurrence: None)
  Receive Date: 20170922
  Receipt Date: 20170922
  Transmission Date: 20171128
  Serious: Yes (Hospitalization)
  Sender: FDA-Public Use
  Company Number: None

PATIENT
  Age: 9 Year
  Sex: Female
  Weight: 45 kg

DRUGS (4)
  1. CYTARABINE. [Suspect]
     Active Substance: CYTARABINE
     Dates: end: 20170912
  2. DEXAMETHASONE. [Suspect]
     Active Substance: DEXAMETHASONE
     Dates: end: 20170915
  3. HEPARIN [Concomitant]
     Active Substance: HEPARIN SODIUM
  4. VINCRISTINE SULFATE. [Suspect]
     Active Substance: VINCRISTINE SULFATE
     Dates: end: 20170912

REACTIONS (10)
  - Dyspnoea [None]
  - Brain herniation [None]
  - Bradycardia [None]
  - Brain oedema [None]
  - Cough [None]
  - Mediastinal mass [None]
  - Ventricular tachycardia [None]
  - Hypertension [None]
  - Pupillary light reflex tests abnormal [None]
  - Haemorrhage intracranial [None]

NARRATIVE: CASE EVENT DATE: 20170916
